FAERS Safety Report 9840460 (Version 1)
Quarter: 2013Q4

REPORT INFORMATION
  Report Type: Spontaneous
  Country: US (occurrence: None)
  Receive Date: 20131211
  Receipt Date: 20131211
  Transmission Date: 20140711
  Serious: No
  Sender: FDA-Public Use
  Company Number: TKT01200700109

PATIENT
  Age: 10 Year
  Sex: Male
  Weight: 25.9 kg

DRUGS (2)
  1. IDURSULFASE [Suspect]
     Indication: MUCOPOLYSACCHARIDOSIS II
     Dosage: 12MG, 1 IN 1 WK INTRAVENOUS
     Route: 042
     Dates: start: 200611
  2. AMOXICILLIN (AMOXICILLIN) [Concomitant]

REACTIONS (8)
  - Tachycardia [None]
  - Hypertension [None]
  - Pyrexia [None]
  - Pallor [None]
  - Infusion related reaction [None]
  - Pharyngitis [None]
  - Heart rate increased [None]
  - Respiratory rate increased [None]
